FAERS Safety Report 5468270-9 (Version None)
Quarter: 2007Q3

REPORT INFORMATION
  Report Type: 
  Country: None (occurrence: None)
  Receive Date: 20070926
  Receipt Date: 20070914
  Transmission Date: 20080115
  Serious: No
  Sender: FDA-Public Use
  Company Number: DE-AVENTIS-200612828DE

PATIENT
  Age: 27 Year
  Sex: Female

DRUGS (1)
  1. ARAVA [Suspect]
     Route: 048
     Dates: end: 20060101

REACTIONS (1)
  - ARRESTED LABOUR [None]
